FAERS Safety Report 6774653-7 (Version None)
Quarter: 2010Q2

REPORT INFORMATION
  Report Type: 
  Country: None (occurrence: None)
  Receive Date: 20100617
  Receipt Date: 20100609
  Transmission Date: 20101027
  Serious: Yes (Hospitalization)
  Sender: FDA-Public Use
  Company Number: TW-BAXTER-2010BH015499

PATIENT
  Age: 9 Year
  Sex: Male
  Weight: 36 kg

DRUGS (9)
  1. ADVATE [Suspect]
     Indication: FACTOR VIII DEFICIENCY
     Route: 042
  2. ADVATE [Suspect]
     Route: 042
     Dates: start: 20100605, end: 20100605
  3. KEFLOR [Concomitant]
     Route: 048
     Dates: start: 20100123, end: 20100225
  4. CHLORPHENIRAMINE MALEATE [Concomitant]
     Route: 048
     Dates: start: 20100123, end: 20100324
  5. VOREN [Concomitant]
     Route: 048
     Dates: start: 20100123, end: 20100226
  6. OXETHAZINE [Concomitant]
     Route: 048
     Dates: start: 20100123, end: 20100225
  7. DANSE [Concomitant]
     Route: 048
     Dates: start: 20100123, end: 20100225
  8. ASVERIN [Concomitant]
     Route: 048
     Dates: start: 20100223, end: 20100225
  9. M-E [Concomitant]
     Route: 048
     Dates: start: 20100315, end: 20100324

REACTIONS (1)
  - MYOCLONUS [None]
